FAERS Safety Report 23575327 (Version 1)
Quarter: 2024Q1

REPORT INFORMATION
  Report Type: Spontaneous
  Country: US (occurrence: US)
  Receive Date: 20240228
  Receipt Date: 20240228
  Transmission Date: 20240409
  Serious: No
  Sender: FDA-Public Use
  Company Number: US-Breckenridge Pharmaceutical, Inc.-2153786

PATIENT
  Age: 91 Year
  Sex: Female
  Weight: 51.364 kg

DRUGS (1)
  1. EPINASTINE HYDROCHLORIDE [Suspect]
     Active Substance: EPINASTINE HYDROCHLORIDE
     Route: 047

REACTIONS (2)
  - Vision blurred [Unknown]
  - Coordination abnormal [Unknown]
